FAERS Safety Report 6345252-6 (Version None)
Quarter: 2009Q3

REPORT INFORMATION
  Report Type: 
  Country: None (occurrence: None)
  Receive Date: 20090909
  Receipt Date: 20090901
  Transmission Date: 20100115
  Serious: Yes (Other)
  Sender: FDA-Public Use
  Company Number: PHHY2009US36985

PATIENT
  Age: 42 Year
  Sex: Male

DRUGS (3)
  1. CYCLOSPORINE [Suspect]
     Indication: APLASTIC ANAEMIA
  2. MYCOPHENOLIC ACID [Suspect]
     Indication: APLASTIC ANAEMIA
  3. THYMOGLOBULIN [Suspect]
     Indication: APLASTIC ANAEMIA

REACTIONS (4)
  - HEPATITIS B [None]
  - HEPATITIS B SURFACE ANTIGEN POSITIVE [None]
  - PANCYTOPENIA [None]
  - TRANSAMINASES INCREASED [None]
